FAERS Safety Report 8021973-4 (Version None)
Quarter: 2012Q1

REPORT INFORMATION
  Report Type: 
  Country: None (occurrence: None)
  Receive Date: 20120104
  Receipt Date: 20111229
  Transmission Date: 20120608
  Serious: Yes (Other)
  Sender: FDA-Public Use
  Company Number: GXKR2011DE003697

PATIENT
  Age: 72 Year
  Sex: Female

DRUGS (1)
  1. ALENDRON-HEXAL [Suspect]
     Dosage: 70 MG, QW
     Route: 048

REACTIONS (4)
  - ANAPHYLACTIC SHOCK [None]
  - OESOPHAGEAL SPASM [None]
  - FLATULENCE [None]
  - THROAT TIGHTNESS [None]
